FAERS Safety Report 7764860-9 (Version None)
Quarter: 2011Q3

REPORT INFORMATION
  Report Type: 
  Country: None (occurrence: None)
  Receive Date: 20110921
  Receipt Date: 20110912
  Transmission Date: 20111222
  Serious: Yes (Hospitalization, Other)
  Sender: FDA-Public Use
  Company Number: CZ-ROCHE-700944

PATIENT
  Sex: Female

DRUGS (8)
  1. ANASTROZOLE [Concomitant]
     Dates: start: 20100226
  2. TRASTUZUMAB [Suspect]
     Route: 065
     Dates: start: 20100226, end: 20100305
  3. TRASTUZUMAB [Suspect]
     Route: 065
     Dates: start: 20100115, end: 20100219
  4. MODURETIC 5-50 [Concomitant]
     Dosage: PER ORAL MEDICATION. FREQUENCY REPORTED AS 1/2-0-0
     Route: 048
     Dates: start: 20091101, end: 20100323
  5. CAPECITABINE [Suspect]
     Dosage: DRUG: CAPECITABIN
     Route: 048
     Dates: start: 20100226, end: 20100414
  6. OMEPRAZOLE [Concomitant]
     Dates: start: 20100108
  7. DOCETAXEL [Concomitant]
     Route: 042
     Dates: start: 20100108, end: 20100219
  8. DETRALEX [Concomitant]

REACTIONS (4)
  - CARDIOTOXICITY [None]
  - LEFT VENTRICULAR DYSFUNCTION [None]
  - NEOPLASM PROGRESSION [None]
  - BREAST CANCER [None]
